FAERS Safety Report 9569046 (Version 1)
Quarter: 2013Q3

REPORT INFORMATION
  Report Type: Spontaneous
  Country: US (occurrence: US)
  Receive Date: 20130930
  Receipt Date: 20130930
  Transmission Date: 20140515
  Serious: No
  Sender: FDA-Public Use
  Company Number: US-AMGEN-USASP2013060323

PATIENT
  Age: 58 Year
  Sex: Female

DRUGS (1)
  1. ENBREL [Suspect]
     Indication: RHEUMATOID ARTHRITIS
     Dosage: UNK, ABOUT EVERY 2 WEEKS
     Route: 065
     Dates: start: 201307

REACTIONS (2)
  - Injection site discolouration [Not Recovered/Not Resolved]
  - Injection site swelling [Not Recovered/Not Resolved]
